FAERS Safety Report 25961612 (Version 1)
Quarter: 2025Q4

REPORT INFORMATION
  Report Type: Spontaneous
  Country: EU (occurrence: EU)
  Receive Date: 20251027
  Receipt Date: 20251027
  Transmission Date: 20260117
  Serious: No
  Sender: ALKEM
  Company Number: EU-ALKEM LABORATORIES LIMITED-BE-ALKEM-2025-06830

PATIENT
  Age: 3 Year
  Sex: Female

DRUGS (28)
  1. CLOBAZAM [Suspect]
     Active Substance: CLOBAZAM
     Indication: Partial seizures with secondary generalisation
     Dosage: UNK
     Route: 065
  2. CLOBAZAM [Suspect]
     Active Substance: CLOBAZAM
     Indication: Clonic convulsion
  3. CLOBAZAM [Suspect]
     Active Substance: CLOBAZAM
     Indication: Epilepsy
  4. CLOBAZAM [Suspect]
     Active Substance: CLOBAZAM
     Indication: Myoclonic epilepsy
  5. LACOSAMIDE [Suspect]
     Active Substance: LACOSAMIDE
     Indication: Partial seizures with secondary generalisation
     Dosage: UNK
     Route: 065
  6. LACOSAMIDE [Suspect]
     Active Substance: LACOSAMIDE
     Indication: Clonic convulsion
  7. LACOSAMIDE [Suspect]
     Active Substance: LACOSAMIDE
     Indication: Myoclonic epilepsy
  8. LACOSAMIDE [Suspect]
     Active Substance: LACOSAMIDE
     Indication: Epilepsy
  9. LEVETIRACETAM [Suspect]
     Active Substance: LEVETIRACETAM
     Indication: Myoclonic epilepsy
     Dosage: UNK
     Route: 065
  10. LEVETIRACETAM [Suspect]
     Active Substance: LEVETIRACETAM
     Indication: Clonic convulsion
  11. LEVETIRACETAM [Suspect]
     Active Substance: LEVETIRACETAM
     Indication: Epilepsy
  12. LEVETIRACETAM [Suspect]
     Active Substance: LEVETIRACETAM
     Indication: Partial seizures with secondary generalisation
  13. VIGABATRIN [Suspect]
     Active Substance: VIGABATRIN
     Indication: Myoclonic epilepsy
     Dosage: UNK
     Route: 065
  14. VIGABATRIN [Suspect]
     Active Substance: VIGABATRIN
     Indication: Clonic convulsion
  15. VIGABATRIN [Suspect]
     Active Substance: VIGABATRIN
     Indication: Epilepsy
  16. VIGABATRIN [Suspect]
     Active Substance: VIGABATRIN
     Indication: Partial seizures with secondary generalisation
  17. FOLIC ACID [Suspect]
     Active Substance: FOLIC ACID
     Indication: Tonic convulsion
     Dosage: UNK
     Route: 065
  18. FOLIC ACID [Suspect]
     Active Substance: FOLIC ACID
     Indication: Myoclonic epilepsy
  19. FOLIC ACID [Suspect]
     Active Substance: FOLIC ACID
     Indication: Epilepsy
  20. FOLIC ACID [Suspect]
     Active Substance: FOLIC ACID
     Indication: Partial seizures with secondary generalisation
  21. PYRIDOXINE [Suspect]
     Active Substance: PYRIDOXINE
     Indication: Myoclonic epilepsy
     Dosage: UNK
     Route: 065
  22. PYRIDOXINE [Suspect]
     Active Substance: PYRIDOXINE
     Indication: Myoclonic epilepsy
  23. PYRIDOXINE [Suspect]
     Active Substance: PYRIDOXINE
     Indication: Epilepsy
  24. PYRIDOXINE [Suspect]
     Active Substance: PYRIDOXINE
     Indication: Partial seizures with secondary generalisation
  25. PHENOBARBITAL [Suspect]
     Active Substance: PHENOBARBITAL
     Indication: Myoclonic epilepsy
     Dosage: UNK
     Route: 065
  26. PHENOBARBITAL [Suspect]
     Active Substance: PHENOBARBITAL
     Indication: Myoclonic epilepsy
  27. PHENOBARBITAL [Suspect]
     Active Substance: PHENOBARBITAL
     Indication: Epilepsy
  28. PHENOBARBITAL [Suspect]
     Active Substance: PHENOBARBITAL
     Indication: Partial seizures with secondary generalisation

REACTIONS (1)
  - Therapy non-responder [Unknown]
